FAERS Safety Report 13353380 (Version 1)
Quarter: 2017Q1

REPORT INFORMATION
  Report Type: Spontaneous
  Country: AU (occurrence: AU)
  Receive Date: 20170321
  Receipt Date: 20170321
  Transmission Date: 20170429
  Serious: Yes (Other)
  Sender: FDA-Public Use
  Company Number: AU-ASTRAZENECA-2017SE24041

PATIENT
  Age: 37 Year
  Sex: Female

DRUGS (1)
  1. ZOLADEX [Suspect]
     Active Substance: GOSERELIN ACETATE
     Indication: HODGKIN^S DISEASE
     Dosage: 3.6MG UNKNOWN
     Route: 058

REACTIONS (2)
  - Gait disturbance [Unknown]
  - Malignant neoplasm progression [Unknown]
